FAERS Safety Report 9458025 (Version 1)
Quarter: 2013Q3

REPORT INFORMATION
  Report Type: Spontaneous
  Country: GB (occurrence: None)
  Receive Date: 20130812
  Receipt Date: 20130812
  Transmission Date: 20140515
  Serious: Yes (Other)
  Sender: FDA-Public Use
  Company Number: AUR-APL-06539

PATIENT
  Age: 81 Year
  Sex: Female
  Weight: 60.3 kg

DRUGS (8)
  1. SIMVASTATIN [Suspect]
     Indication: HYPERCHOLESTEROLAEMIA
  2. ASPIRIN (ACETYLSALICYLIC ACID) [Concomitant]
  3. CANDESARTAN (CANDESARTAN) [Concomitant]
  4. IVABRADINE (IVAVRADINE) [Concomitant]
  5. LANSOPRAZOLE (LANSOPRAZOLE) [Concomitant]
  6. LEVOTHYROXINE (LEVOTHYROXINE) [Concomitant]
  7. SEREVENT (SALMETEROL XINAFOATE) [Concomitant]
  8. VENTOLIN (SALBUTAMOL) [Concomitant]

REACTIONS (10)
  - Headache [None]
  - Dizziness [None]
  - Drug withdrawal syndrome [None]
  - Cold sweat [None]
  - Malaise [None]
  - Sleep disorder [None]
  - Feeling abnormal [None]
  - Anxiety [None]
  - Derealisation [None]
  - Middle insomnia [None]
